FAERS Safety Report 25266995 (Version 1)
Quarter: 2025Q2

REPORT INFORMATION
  Report Type: Spontaneous
  Country: US (occurrence: US)
  Receive Date: 20250505
  Receipt Date: 20250505
  Transmission Date: 20250717
  Serious: Yes (Other)
  Sender: SANOFI AVENTIS
  Company Number: US-SANOFI-02498492

PATIENT
  Age: 73 Year
  Sex: Male

DRUGS (1)
  1. LOVENOX [Suspect]
     Active Substance: ENOXAPARIN SODIUM
     Indication: Transient ischaemic attack
     Dosage: 80 MG, BID
     Route: 058

REACTIONS (2)
  - Cerebrovascular accident [Unknown]
  - Off label use [Unknown]
